FAERS Safety Report 7135029-6 (Version None)
Quarter: 2010Q4

REPORT INFORMATION
  Report Type: 
  Country: None (occurrence: None)
  Receive Date: 20101203
  Receipt Date: 20101021
  Transmission Date: 20110411
  Serious: No
  Sender: FDA-Public Use
  Company Number: US-ALLERGAN-1013550US

PATIENT
  Age: 38 Year
  Sex: Female

DRUGS (2)
  1. TAZORAC [Suspect]
     Indication: ACNE
     Dosage: UNK
     Route: 061
     Dates: start: 20101012, end: 20101015
  2. ACZONE [Suspect]
     Indication: ACNE
     Dosage: UNK
     Route: 061
     Dates: start: 20101012, end: 20101015

REACTIONS (3)
  - BURNING SENSATION [None]
  - ERYTHEMA [None]
  - FACIAL PAIN [None]
